FAERS Safety Report 9224405 (Version 1)
Quarter: 2013Q2

REPORT INFORMATION
  Report Type: Spontaneous
  Country: US (occurrence: None)
  Receive Date: 20130409
  Receipt Date: 20130409
  Transmission Date: 20140414
  Serious: Yes (Life-Threatening, Disabling)
  Sender: FDA-Public Use
  Company Number: None

PATIENT
  Sex: Female
  Weight: 56.7 kg

DRUGS (2)
  1. AVONEX [Suspect]
     Indication: MULTIPLE SCLEROSIS
     Dosage: 1X WEEEK
     Dates: start: 2000, end: 2012
  2. AVONEX [Suspect]
     Dosage: 1X WEEEK
     Dates: start: 2000, end: 2012

REACTIONS (2)
  - Breast cancer [None]
  - Intraocular melanoma [None]
